FAERS Safety Report 17823254 (Version 1)
Quarter: 2020Q2

REPORT INFORMATION
  Report Type: Spontaneous
  Country: CA (occurrence: CA)
  Receive Date: 20200526
  Receipt Date: 20200526
  Transmission Date: 20200714
  Serious: Yes (Other)
  Sender: FDA-Public Use
  Company Number: CA-TEVA-2020-CA-1238807

PATIENT
  Sex: Female

DRUGS (4)
  1. ONDANSETRON [Concomitant]
     Active Substance: ONDANSETRON
  2. PANTOPRAZOLE [Suspect]
     Active Substance: PANTOPRAZOLE
     Indication: PRODUCT USED FOR UNKNOWN INDICATION
     Route: 042
  3. DOXORUBICIN HYDROCHLORIDE. [Suspect]
     Active Substance: DOXORUBICIN HYDROCHLORIDE
     Indication: PRODUCT USED FOR UNKNOWN INDICATION
     Route: 041
  4. DEXAMETHASONE. [Concomitant]
     Active Substance: DEXAMETHASONE

REACTIONS (20)
  - Hypotension [Unknown]
  - Nausea [Unknown]
  - White blood cell count decreased [Unknown]
  - Decreased appetite [Unknown]
  - Ejection fraction decreased [Unknown]
  - Lymphocyte count decreased [Unknown]
  - Oesophagitis [Unknown]
  - Stomatitis [Unknown]
  - Fatigue [Unknown]
  - Tooth infection [Unknown]
  - Pneumonia [Unknown]
  - Dysgeusia [Unknown]
  - Febrile neutropenia [Unknown]
  - Platelet count decreased [Unknown]
  - Pyrexia [Unknown]
  - Vomiting [Unknown]
  - Alopecia [Unknown]
  - Anaemia [Unknown]
  - Hepatic infection [Unknown]
  - Neutrophil count decreased [Unknown]
